FAERS Safety Report 7508933-4 (Version None)
Quarter: 2011Q2

REPORT INFORMATION
  Report Type: 
  Country: None (occurrence: None)
  Receive Date: 20110527
  Receipt Date: 20110524
  Transmission Date: 20111010
  Serious: Yes (Hospitalization)
  Sender: FDA-Public Use
  Company Number: US-SANOFI-AVENTIS-2011SA032030

PATIENT
  Age: 81 Year
  Sex: Female

DRUGS (6)
  1. NITROGLYCERIN [Concomitant]
  2. ROSUVASTATIN CALCIUM [Concomitant]
  3. PLAVIX [Suspect]
     Route: 048
     Dates: start: 20101001
  4. OMEPRAZOLE [Concomitant]
     Route: 065
  5. VALSARTAN [Concomitant]
  6. CARVEDILOL [Concomitant]

REACTIONS (6)
  - BRADYCARDIA [None]
  - ERYTHEMA [None]
  - RASH PRURITIC [None]
  - LOSS OF CONSCIOUSNESS [None]
  - HYPOTENSION [None]
  - SWELLING FACE [None]
